FAERS Safety Report 9477241 (Version 5)
Quarter: 2013Q3

REPORT INFORMATION
  Report Type: Spontaneous
  Country: JP (occurrence: JP)
  Receive Date: 20130826
  Receipt Date: 20130930
  Transmission Date: 20140515
  Serious: Yes (Other)
  Sender: FDA-Public Use
  Company Number: JP-JNJFOC-20130806057

PATIENT
  Age: 40 Year
  Sex: Male

DRUGS (7)
  1. TRAMCET [Suspect]
     Indication: PAIN
     Dosage: 1 PER DAY
     Route: 048
     Dates: end: 20130722
  2. TRAMCET [Suspect]
     Indication: PAIN
     Dosage: 1 PER 1 DAY
     Route: 048
     Dates: start: 20130723, end: 20130816
  3. RISPERDAL [Suspect]
     Indication: HALLUCINATION, VISUAL
     Dosage: 1 PER 1 DAY
     Route: 048
  4. RISPERDAL [Suspect]
     Indication: HALLUCINATION, VISUAL
     Dosage: 1 PER 1 DAY
     Route: 048
     Dates: start: 20130809
  5. CALONAL [Concomitant]
     Indication: PAIN
     Dosage: 1 PER 1 DAY
     Route: 048
     Dates: end: 20130816
  6. CELECOX [Concomitant]
     Indication: PAIN
     Dosage: 1 PER 1 DAY
     Route: 048
     Dates: end: 20130816
  7. LYRICA [Concomitant]
     Indication: PAIN
     Dosage: 1 PER 1 DAY
     Route: 048

REACTIONS (3)
  - Hallucination, visual [Recovered/Resolved]
  - Off label use [Unknown]
  - Tongue oedema [Recovering/Resolving]
